FAERS Safety Report 18428432 (Version 2)
Quarter: 2020Q4

REPORT INFORMATION
  Report Type: Spontaneous
  Country: IT (occurrence: IT)
  Receive Date: 20201026
  Receipt Date: 20201101
  Transmission Date: 20210114
  Serious: Yes (Other)
  Sender: FDA-Public Use
  Company Number: NVSC2020IT281487

PATIENT
  Age: 63 Year
  Sex: Female
  Weight: 48 kg

DRUGS (5)
  1. PRAMIPEXOLE. [Suspect]
     Active Substance: PRAMIPEXOLE
     Indication: PARKINSON^S DISEASE
     Dosage: 1.05 MG, Q24H (1X / DAY)
     Route: 048
     Dates: start: 2010, end: 20200715
  2. ONGENTYS [Interacting]
     Active Substance: OPICAPONE
     Indication: PARKINSON^S DISEASE
     Dosage: 50 MG, Q24H (1X / DAY)
     Route: 048
     Dates: start: 20200701
  3. PRAMIPEXOLE. [Interacting]
     Active Substance: PRAMIPEXOLE
     Dosage: 2.1 MG, Q24H (1X / DAY)
     Route: 048
  4. LEVODOPA/CARBIDOPA [Concomitant]
     Active Substance: CARBIDOPA\LEVODOPA
     Indication: PARKINSON^S DISEASE
     Dosage: 0.5 DF (100/25 MILLIGRAM, 0.5 DOSAGE FORM, 5 TIMES A DAY)
     Route: 048
     Dates: start: 2010
  5. PRAMIPEXOLE. [Interacting]
     Active Substance: PRAMIPEXOLE
     Dosage: 0.52 MG, Q24H (1X / DAY)
     Route: 048
     Dates: start: 20200716

REACTIONS (2)
  - Drug interaction [Not Recovered/Not Resolved]
  - Hallucination [Not Recovered/Not Resolved]

NARRATIVE: CASE EVENT DATE: 20200710
